FAERS Safety Report 7291759-7 (Version None)
Quarter: 2011Q1

REPORT INFORMATION
  Report Type: 
  Country: None (occurrence: None)
  Receive Date: 20110214
  Receipt Date: 20110209
  Transmission Date: 20110831
  Serious: Yes (Hospitalization, Other)
  Sender: FDA-Public Use
  Company Number: US-PFIZER INC-2010093160

PATIENT
  Sex: Female
  Weight: 99.773 kg

DRUGS (10)
  1. NIFEDIPINE [Concomitant]
     Indication: HYPERTENSION
  2. ENALAPRIL [Concomitant]
     Dosage: 10 MG, DAILY
  3. ESTRADIOL [Concomitant]
     Dosage: 30 MG, DAILY
  4. PAXIL [Concomitant]
     Dosage: UNK
  5. GEMFIBROZIL [Concomitant]
     Dosage: 600 MG, UNK
  6. SEROQUEL XR [Concomitant]
     Dosage: 50 MG, DAILY
  7. PRISTIQ [Suspect]
     Dosage: 50 MG, DAILY
     Dates: start: 20100101
  8. NIFEDIPINE [Concomitant]
     Indication: BLOOD PRESSURE
     Dosage: 30 MG, UNK
  9. CHERATUSSIN [Concomitant]
     Dosage: UNK
  10. XANAX [Suspect]
     Indication: DEPRESSION
     Dosage: 1 MG, 4X/DAY

REACTIONS (5)
  - HOSTILITY [None]
  - DRUG INEFFECTIVE [None]
  - VIOLENCE-RELATED SYMPTOM [None]
  - FEELING ABNORMAL [None]
  - INFECTION [None]
